FAERS Safety Report 16721587 (Version 1)
Quarter: 2019Q3

REPORT INFORMATION
  Report Type: Spontaneous
  Country: US (occurrence: US)
  Receive Date: 20190820
  Receipt Date: 20190820
  Transmission Date: 20191005
  Serious: Yes (Other)
  Sender: FDA-Public Use
  Company Number: US-TEVA-2019-US-1093560

PATIENT
  Age: 54 Year
  Sex: Female

DRUGS (2)
  1. HYDROCHLOROTHIAZIDE W/LOSARTAN [Concomitant]
     Active Substance: HYDROCHLOROTHIAZIDE\LOSARTAN
     Indication: HYPERTENSION
     Route: 065
  2. FILGRASTIM [Suspect]
     Active Substance: FILGRASTIM
     Route: 065

REACTIONS (1)
  - Drug-induced liver injury [Recovered/Resolved]
